FAERS Safety Report 10022178 (Version 1)
Quarter: 2014Q1

REPORT INFORMATION
  Report Type: Spontaneous
  Country: FR (occurrence: FR)
  Receive Date: 20140319
  Receipt Date: 20140319
  Transmission Date: 20141002
  Serious: Yes (Hospitalization)
  Sender: FDA-Public Use
  Company Number: FR-GLAXOSMITHKLINE-B0976485A

PATIENT
  Age: 60 Year
  Sex: Male

DRUGS (4)
  1. ZOPHREN [Suspect]
     Indication: PREMEDICATION
     Dosage: 8MG CYCLIC
     Route: 042
     Dates: start: 20140114, end: 20140114
  2. OXALIPLATINE [Suspect]
     Indication: RECTAL ADENOCARCINOMA
     Dosage: 115MG CYCLIC
     Route: 042
     Dates: start: 20140114, end: 20140114
  3. LEVOFOLINIC ACID [Suspect]
     Indication: PREMEDICATION
     Dosage: 275MG CYCLIC
     Route: 042
     Dates: start: 20140114, end: 20140114
  4. METHYLPREDNISOLONE [Suspect]
     Indication: PREMEDICATION
     Dosage: 60MG CYCLIC
     Route: 042
     Dates: start: 20140114, end: 20140114

REACTIONS (2)
  - Infusion related reaction [Recovered/Resolved]
  - Chills [Recovered/Resolved]
